FAERS Safety Report 4638931-X (Version None)
Quarter: 2005Q2

REPORT INFORMATION
  Report Type: 
  Country: None (occurrence: None)
  Receive Date: 20050419
  Receipt Date: 20050414
  Transmission Date: 20051028
  Serious: Yes (Life-Threatening, Disabling, Other)
  Sender: FDA-Public Use
  Company Number: US-GLAXOSMITHKLINE-A0554416A

PATIENT
  Age: 65 Year
  Sex: Female

DRUGS (8)
  1. AVANDIA [Suspect]
     Dosage: 8MG PER DAY
     Route: 048
     Dates: start: 20041116, end: 20050414
  2. METFORMIN HCL [Concomitant]
  3. LIPITOR [Concomitant]
  4. AMARYL [Concomitant]
  5. LASIX [Concomitant]
  6. COZAAR [Concomitant]
  7. LANTUS [Concomitant]
  8. INSULIN [Concomitant]

REACTIONS (3)
  - CHEST DISCOMFORT [None]
  - DYSPNOEA [None]
  - FATIGUE [None]
